FAERS Safety Report 4984657-2 (Version None)
Quarter: 2006Q2

REPORT INFORMATION
  Report Type: 
  Country: None (occurrence: None)
  Receive Date: 20060427
  Receipt Date: 20060419
  Transmission Date: 20061013
  Serious: Yes (Hospitalization)
  Sender: FDA-Public Use
  Company Number: CA-MERCK-0604CAN00076

PATIENT
  Age: 77 Year
  Sex: Female

DRUGS (15)
  1. VIOXX [Suspect]
     Indication: ARTHRITIS
     Route: 048
     Dates: start: 20001001, end: 20030301
  2. RANITIDINE HYDROCHLORIDE [Concomitant]
     Route: 065
  3. RANITIDINE HYDROCHLORIDE [Concomitant]
     Route: 065
  4. INDAPAMIDE [Concomitant]
     Route: 065
  5. DIAZEPAM [Concomitant]
     Route: 065
  6. NIZATIDINE [Concomitant]
     Route: 065
  7. MONTELUKAST SODIUM [Concomitant]
     Route: 048
  8. CLARITHROMYCIN [Concomitant]
     Route: 065
  9. FERROUS SULFATE [Concomitant]
     Route: 065
  10. QUINAPRIL HYDROCHLORIDE [Concomitant]
     Route: 065
  11. POTASSIUM CHLORIDE [Concomitant]
     Route: 065
  12. PREDNISONE [Concomitant]
     Route: 065
  13. FUROSEMIDE [Concomitant]
     Route: 065
  14. PAROXETINE HYDROCHLORIDE [Concomitant]
     Route: 065
  15. NIZATIDINE [Concomitant]
     Route: 065

REACTIONS (7)
  - DIZZINESS [None]
  - HEADACHE [None]
  - HEART RATE INCREASED [None]
  - HOT FLUSH [None]
  - HYPOAESTHESIA [None]
  - INFARCTION [None]
  - MALAISE [None]
